FAERS Safety Report 14594932 (Version 1)
Quarter: 2018Q1

REPORT INFORMATION
  Report Type: Spontaneous
  Country: US (occurrence: US)
  Receive Date: 20180302
  Receipt Date: 20180302
  Transmission Date: 20180509
  Serious: No
  Sender: FDA-Public Use
  Company Number: US-AKORN PHARMACEUTICALS-2017AKN01289

PATIENT
  Sex: Female
  Weight: 67.57 kg

DRUGS (7)
  1. HYOSCYAMINE. [Concomitant]
     Active Substance: HYOSCYAMINE
     Dosage: 0.125 MG, UP TO 4X/DAY
     Route: 060
  2. MYORISAN [Suspect]
     Active Substance: ISOTRETINOIN
     Indication: ACNE
     Dosage: 20 MG, 1X/DAY
     Route: 048
     Dates: start: 20170721, end: 20171026
  3. MYORISAN [Suspect]
     Active Substance: ISOTRETINOIN
     Indication: ACNE
     Dosage: 40 MG, 1X/DAY
     Route: 048
     Dates: start: 20170721, end: 20171026
  4. HYDROCORTISONE VALERATE. [Concomitant]
     Active Substance: HYDROCORTISONE VALERATE
     Dosage: UNK UNK, UP TO 2X/DAY
     Route: 061
  5. TRIAMCINOLONE [Concomitant]
     Active Substance: TRIAMCINOLONE
     Dosage: UNK UNK, UP TO 2X/DAY
     Route: 061
  6. AMITRIPTYLINE [Concomitant]
     Active Substance: AMITRIPTYLINE
     Dosage: 10 MG, 1X/DAY
     Route: 048
  7. NEXPLANON [Concomitant]
     Active Substance: ETONOGESTREL

REACTIONS (17)
  - Dermatitis atopic [Unknown]
  - Constipation [Unknown]
  - Lactose intolerance [Unknown]
  - Skin exfoliation [Unknown]
  - Xerosis [Unknown]
  - Abdominal pain [Unknown]
  - Irritable bowel syndrome [Unknown]
  - Abdominal pain lower [Unknown]
  - Skin hyperpigmentation [Unknown]
  - Dysmenorrhoea [Unknown]
  - Tinnitus [Recovered/Resolved]
  - Lip dry [Unknown]
  - Haematochezia [Unknown]
  - Dry skin [Recovered/Resolved]
  - Chapped lips [Unknown]
  - Scar [Unknown]
  - Diarrhoea [Unknown]

NARRATIVE: CASE EVENT DATE: 2017
